FAERS Safety Report 10400695 (Version 1)
Quarter: 2014Q1

REPORT INFORMATION
  Report Type: Spontaneous
  Country: US (occurrence: None)
  Receive Date: 20130815
  Receipt Date: 20130815
  Transmission Date: 20141002
  Serious: Yes (Other)
  Sender: FDA-Public Use
  Company Number: ADR-2012-01454

PATIENT
  Sex: Female

DRUGS (2)
  1. LIORESAL [Suspect]
     Indication: BRAIN INJURY
     Dosage: 240MCG/DAY
  2. LIORESAL [Suspect]
     Dosage: 240MCG/DAY

REACTIONS (3)
  - Muscular weakness [None]
  - Overdose [None]
  - Dizziness [None]
